FAERS Safety Report 14804205 (Version 1)
Quarter: 2018Q2

REPORT INFORMATION
  Report Type: Spontaneous
  Country: US (occurrence: US)
  Receive Date: 20180425
  Receipt Date: 20180425
  Transmission Date: 20180711
  Serious: No
  Sender: FDA-Public Use
  Company Number: US-HORIZON-VIM-0075-2018

PATIENT
  Age: 47 Year
  Sex: Male

DRUGS (1)
  1. VIMOVO [Suspect]
     Active Substance: ESOMEPRAZOLE MAGNESIUM\NAPROXEN
     Indication: FIBROMYALGIA
     Dosage: 1 TABLET BID BEFORE MEALS
     Dates: start: 20180410

REACTIONS (5)
  - Product physical consistency issue [Unknown]
  - Product solubility abnormal [Unknown]
  - Chest pain [Not Recovered/Not Resolved]
  - Influenza [Unknown]
  - Off label use [Unknown]

NARRATIVE: CASE EVENT DATE: 201804
